FAERS Safety Report 4473099-4 (Version None)
Quarter: 2004Q4

REPORT INFORMATION
  Report Type: 
  Country: None (occurrence: None)
  Receive Date: 20041013
  Receipt Date: 20040927
  Transmission Date: 20050328
  Serious: Yes (Other)
  Sender: FDA-Public Use
  Company Number: PHFR2004GB03626

PATIENT
  Sex: Female

DRUGS (1)
  1. OXYTOCIN [Suspect]
     Dosage: UNK, ONCE/SINGLE
     Route: 030
     Dates: start: 20040919, end: 20040919

REACTIONS (3)
  - DRUG INEFFECTIVE [None]
  - POSTPARTUM HAEMORRHAGE [None]
  - VAGINAL LESION [None]
